FAERS Safety Report 4383085-0 (Version None)
Quarter: 2004Q2

REPORT INFORMATION
  Report Type: 
  Country: None (occurrence: None)
  Receive Date: 20040618
  Receipt Date: 20040604
  Transmission Date: 20050107
  Serious: Yes (Death)
  Sender: FDA-Public Use
  Company Number: T04-USA-01379-01

PATIENT
  Age: 87 Year
  Sex: Female
  Weight: 53.978 kg

DRUGS (10)
  1. MEMANTINE (OPEN LABEL, PHASE C) (MEMANTINE) [Suspect]
     Indication: DEMENTIA ALZHEIMER'S TYPE
     Dosage: 2 TABLET BID PO
     Route: 048
     Dates: start: 20030509, end: 20040318
  2. MEMANTINE (OPEN LABEL, PHASE B) (MEMANTINE) [Suspect]
     Indication: DEMENTIA ALZHEIMER'S TYPE
     Dosage: 2 TABLET BID PO
     Route: 048
     Dates: start: 20030129, end: 20030508
  3. MEMANTINE HCL [Suspect]
     Indication: DEMENTIA ALZHEIMER'S TYPE
     Dosage: 2 TABLETS BID PO
     Route: 048
     Dates: start: 20030103, end: 20030128
  4. SYNTHROID [Concomitant]
  5. LANOXIN [Concomitant]
  6. NISOLDIPINE [Concomitant]
  7. DILTIAZEM [Concomitant]
  8. AMBIEN [Concomitant]
  9. MULTI-VITAMINS [Concomitant]
  10. IRON [Concomitant]

REACTIONS (5)
  - COMA [None]
  - EATING DISORDER [None]
  - HALLUCINATION [None]
  - INCOHERENT [None]
  - VASCULAR DEMENTIA [None]
